FAERS Safety Report 8307378-7 (Version None)
Quarter: 2012Q2

REPORT INFORMATION
  Report Type: 
  Country: None (occurrence: None)
  Receive Date: 20120419
  Receipt Date: 20120410
  Transmission Date: 20120825
  Serious: Yes (Hospitalization, Other)
  Sender: FDA-Public Use
  Company Number: 2012MA002244

PATIENT
  Age: 26 Year
  Sex: Female

DRUGS (5)
  1. METOCLOPRAMIDE [Concomitant]
  2. MS CONTIN [Concomitant]
  3. GABAPENTIN [Suspect]
     Indication: DIABETIC NEUROPATHY
     Dosage: 900 MG;TID;PO
     Route: 048
     Dates: end: 20110311
  4. TOPIRAMATE [Concomitant]
  5. DULOXETINE HYDROCHLORIDE [Concomitant]

REACTIONS (7)
  - SOMNOLENCE [None]
  - CAESAREAN SECTION [None]
  - PREGNANCY [None]
  - MATERNAL EXPOSURE DURING PREGNANCY [None]
  - DIABETIC KETOACIDOSIS [None]
  - PYREXIA [None]
  - PREMATURE BABY [None]
